FAERS Safety Report 14677582 (Version 1)
Quarter: 2018Q1

REPORT INFORMATION
  Report Type: Spontaneous
  Country: US (occurrence: US)
  Receive Date: 20180324
  Receipt Date: 20180324
  Transmission Date: 20180509
  Serious: Yes (Hospitalization)
  Sender: FDA-Public Use
  Company Number: None

PATIENT
  Age: 57 Year
  Sex: Male

DRUGS (23)
  1. IBUPROFEN. [Concomitant]
     Active Substance: IBUPROFEN
  2. LEVOTHYROXIN [Concomitant]
     Active Substance: LEVOTHYROXINE
  3. PIOGLITAZONE. [Concomitant]
     Active Substance: PIOGLITAZONE
  4. CICLOPIROX. [Concomitant]
     Active Substance: CICLOPIROX
  5. FENOFIBRATE. [Concomitant]
     Active Substance: FENOFIBRATE
  6. KAZANO [Concomitant]
     Active Substance: ALOGLIPTIN BENZOATE\METFORMIN HYDROCHLORIDE
  7. LISINOPRIL. [Concomitant]
     Active Substance: LISINOPRIL
  8. POT CITRATE [Concomitant]
     Active Substance: POTASSIUM CITRATE
  9. TESTOST CYP [Concomitant]
     Active Substance: TESTOSTERONE CYPIONATE
  10. BUSPIRONE [Concomitant]
     Active Substance: BUSPIRONE HYDROCHLORIDE
  11. HUMALOG MIX [Concomitant]
     Active Substance: INSULIN LISPRO
  12. FOLIC ACID. [Concomitant]
     Active Substance: FOLIC ACID
  13. GLIMEPRIRIDE [Concomitant]
  14. INVOKANA [Concomitant]
     Active Substance: CANAGLIFLOZIN
  15. SERTRALINE [Concomitant]
     Active Substance: SERTRALINE HYDROCHLORIDE
  16. DICLOFENAC [Concomitant]
     Active Substance: DICLOFENAC
  17. HUMIRA [Suspect]
     Active Substance: ADALIMUMAB
     Indication: RHEUMATOID ARTHRITIS
     Route: 058
     Dates: start: 20161118
  18. ALCLOMETASON [Concomitant]
  19. HYDROCO/APAP [Concomitant]
     Active Substance: ACETAMINOPHEN\HYDROCODONE
  20. LOVASTATIN. [Concomitant]
     Active Substance: LOVASTATIN
  21. METHOTREXATE. [Concomitant]
     Active Substance: METHOTREXATE
  22. VASCEPA [Concomitant]
     Active Substance: ICOSAPENT ETHYL
  23. BYDUREON [Concomitant]
     Active Substance: EXENATIDE

REACTIONS (2)
  - Condition aggravated [None]
  - Carpal tunnel syndrome [None]
